FAERS Safety Report 6622280-4 (Version None)
Quarter: 2010Q1

REPORT INFORMATION
  Report Type: 
  Country: None (occurrence: None)
  Receive Date: 20100310
  Receipt Date: 20100223
  Transmission Date: 20100710
  Serious: Yes (Hospitalization)
  Sender: FDA-Public Use
  Company Number: US-ELI_LILLY_AND_COMPANY-US200912005057

PATIENT
  Sex: Female

DRUGS (11)
  1. FORTEO [Suspect]
     Indication: OSTEOPOROSIS
     Dosage: 20 UG, DAILY (1/D)
     Dates: start: 20090101, end: 20100104
  2. FORTEO [Suspect]
     Dosage: 20 UG, DAILY (1/D)
     Dates: start: 20090601
  3. AMITIZA [Concomitant]
     Indication: DIVERTICULITIS
     Dates: end: 20100104
  4. SYNTHROID [Concomitant]
     Dates: end: 20100104
  5. ASPIRIN [Concomitant]
     Dates: end: 20100104
  6. LOVASTATIN [Concomitant]
     Dates: end: 20100104
  7. VITAMINS NOS [Concomitant]
     Dosage: UNK, DAILY (1/D)
     Dates: end: 20100104
  8. CALCIUM                                 /N/A/ [Concomitant]
     Dosage: UNK, 2/D
     Dates: end: 20100104
  9. CO-Q10 [Concomitant]
     Dosage: UNK, DAILY (1/D)
  10. LIPITOR [Concomitant]
     Dosage: UNK, DAILY (1/D)
  11. VITAMIN D [Concomitant]
     Dosage: 2000 IU, DAILY (1/D)

REACTIONS (1)
  - DIVERTICULITIS [None]
